FAERS Safety Report 20730969 (Version 1)
Quarter: 2022Q2

REPORT INFORMATION
  Report Type: Other
  Country: KR (occurrence: None)
  Receive Date: 20220420
  Receipt Date: 20220420
  Transmission Date: 20220721
  Serious: Yes (Other)
  Sender: FDA-Public Use
  Company Number: KR-ROCHE-3077321

PATIENT
  Age: 66 Year
  Sex: Male
  Weight: 63.5 kg

DRUGS (7)
  1. ATEZOLIZUMAB [Suspect]
     Active Substance: ATEZOLIZUMAB
     Indication: Small cell lung cancer extensive stage
     Dosage: NEXT DOSES ON 29/JAN/2021, 19/FEB/2021, 13/MAR/2021
     Route: 041
     Dates: start: 20210105
  2. CARBOPLATIN [Suspect]
     Active Substance: CARBOPLATIN
     Indication: Small cell lung cancer extensive stage
     Dosage: NEXT DOSE ON 29/JAN/2021 (418 MG/M2), 19/FEB/2021 (342 MG/M2), 13/MAR/2021 (322 MG/M2).
     Route: 042
     Dates: start: 20210105
  3. ETOPOSIDE [Suspect]
     Active Substance: ETOPOSIDE
     Indication: Small cell lung cancer extensive stage
     Dosage: NEXT DOSES ON 06/JAN/2021, 07/JAN/2021, 29/JAN/2021 (140 MG/M2), 31/JAN/2021, 01/FEB/2021, 19/FEB/20
     Route: 042
     Dates: start: 20210105
  4. ERDOSTEINE [Concomitant]
     Active Substance: ERDOSTEINE
  5. LEVOTICS CR [Concomitant]
  6. GASTER (SOUTH KOREA) [Concomitant]
  7. KEPPRA [Concomitant]
     Active Substance: LEVETIRACETAM

REACTIONS (4)
  - Decreased appetite [Recovered/Resolved]
  - Hyponatraemia [Recovered/Resolved]
  - Toxic skin eruption [Recovered/Resolved]
  - Renal infarct [Not Recovered/Not Resolved]

NARRATIVE: CASE EVENT DATE: 20210113
